FAERS Safety Report 24602858 (Version 1)
Quarter: 2024Q4

REPORT INFORMATION
  Report Type: Other
  Country: US (occurrence: US)
  Receive Date: 20241111
  Receipt Date: 20241111
  Transmission Date: 20250115
  Serious: Yes (Death, Hospitalization)
  Sender: ANI
  Company Number: US-ANIPHARMA-012718

PATIENT
  Age: 54 Year
  Sex: Male

DRUGS (9)
  1. PHENYTOIN [Suspect]
     Active Substance: PHENYTOIN
     Indication: Status epilepticus
     Dosage: 150MG
     Route: 048
  2. LACOSAMIDE [Concomitant]
     Active Substance: LACOSAMIDE
     Indication: Status epilepticus
     Dosage: 200MG
  3. PROPOFOL [Concomitant]
     Active Substance: PROPOFOL
     Indication: Status epilepticus
     Dosage: 60 MCG/KG/MINUTE
  4. PHENOBARBITAL [Concomitant]
     Active Substance: PHENOBARBITAL
     Indication: Status epilepticus
     Dosage: 650MG INJECTION
  5. KETAMINE [Concomitant]
     Active Substance: KETAMINE
     Indication: Status epilepticus
  6. CEFEPIME [Concomitant]
     Active Substance: CEFEPIME HYDROCHLORIDE
     Indication: Evidence based treatment
  7. VANCOMYCIN [Concomitant]
     Active Substance: VANCOMYCIN
     Indication: Evidence based treatment
  8. PHENOBARBITAL [Concomitant]
     Active Substance: PHENOBARBITAL
     Indication: Status epilepticus
     Dosage: FOLLOWED BY INTERMITTENT 130MG
  9. PROPOFOL [Concomitant]
     Active Substance: PROPOFOL
     Indication: Status epilepticus
     Dosage: RAPIDLY INCREASED MAXIMUM DOSE

REACTIONS (1)
  - Drug ineffective [Fatal]
